FAERS Safety Report 16352083 (Version 2)
Quarter: 2020Q2

REPORT INFORMATION
  Report Type: Spontaneous
  Country: US (occurrence: US)
  Receive Date: 20190524
  Receipt Date: 20200519
  Transmission Date: 20200713
  Serious: No
  Sender: FDA-Public Use
  Company Number: US-NOVEN PHARMACEUTICALS, INC.-US2019000122

PATIENT

DRUGS (3)
  1. DAYTRANA [Suspect]
     Active Substance: METHYLPHENIDATE
     Dosage: 20 MG, 9 HOURS DAILY
     Route: 062
  2. DAYTRANA [Suspect]
     Active Substance: METHYLPHENIDATE
     Indication: ATTENTION DEFICIT HYPERACTIVITY DISORDER
     Dosage: 15 MG
     Route: 062
     Dates: start: 20180520
  3. DAYTRANA [Suspect]
     Active Substance: METHYLPHENIDATE
     Indication: OPPOSITIONAL DEFIANT DISORDER
     Dosage: 15 MG OVER 9 HOURS
     Route: 062

REACTIONS (11)
  - Product dose omission [Recovered/Resolved]
  - Disturbance in attention [Unknown]
  - Psychomotor hyperactivity [Unknown]
  - Therapy cessation [Recovered/Resolved]
  - Accidental exposure to product [Unknown]
  - Off label use [Not Recovered/Not Resolved]
  - Feeling abnormal [Unknown]
  - Therapeutic product effect delayed [Unknown]
  - Social avoidant behaviour [Unknown]
  - Incorrect product administration duration [Unknown]
  - Application site erythema [Unknown]

NARRATIVE: CASE EVENT DATE: 2018
